FAERS Safety Report 24688803 (Version 1)
Quarter: 2024Q4

REPORT INFORMATION
  Report Type: Spontaneous
  Country: NO (occurrence: NO)
  Receive Date: 20241203
  Receipt Date: 20241203
  Transmission Date: 20250115
  Serious: Yes (Life-Threatening, Hospitalization)
  Sender: NOVO NORDISK
  Company Number: None

PATIENT
  Age: 69 Year
  Sex: Female

DRUGS (2)
  1. OZEMPIC [Suspect]
     Active Substance: SEMAGLUTIDE
     Indication: Diabetes mellitus
     Dosage: UNK
     Dates: start: 20231101, end: 20241028
  2. SITAGLIPTIN/METFORMIN KRKA [Concomitant]
     Indication: Diabetes mellitus
     Dosage: 2 DF, 50/1000 IN THE MORNING AND EVENING

REACTIONS (8)
  - Liver disorder [Recovering/Resolving]
  - Lactic acidosis [Recovering/Resolving]
  - Shock [Recovering/Resolving]
  - Renal failure [Recovering/Resolving]
  - Vomiting [Recovering/Resolving]
  - Diarrhoea [Recovering/Resolving]
  - Cholelithiasis [Recovering/Resolving]
  - Nausea [Recovering/Resolving]
